FAERS Safety Report 24589249 (Version 1)
Quarter: 2024Q4

REPORT INFORMATION
  Report Type: Spontaneous
  Country: DE (occurrence: DE)
  Receive Date: 20241107
  Receipt Date: 20241107
  Transmission Date: 20250114
  Serious: Yes (Other)
  Sender: ALNYLAM PHARMACEUTICALS
  Company Number: DE-ALNYLAM PHARMACEUTICALS, INC.-ALN-2024-006125

PATIENT

DRUGS (1)
  1. ONPATTRO [Suspect]
     Active Substance: PATISIRAN SODIUM
     Indication: Hereditary neuropathic amyloidosis
     Dosage: UNK UNK, Q3W
     Route: 042
     Dates: start: 202107, end: 202107

REACTIONS (8)
  - Pneumonia aspiration [Unknown]
  - Acute kidney injury [Unknown]
  - Syncope [Unknown]
  - Dysphagia [Unknown]
  - Weight decreased [Unknown]
  - Muscle atrophy [Unknown]
  - Gastrointestinal tube insertion [Unknown]
  - Orthostatic hypotension [Unknown]
